FAERS Safety Report 21094834 (Version 2)
Quarter: 2022Q3

REPORT INFORMATION
  Report Type: Report from Study
  Country: GB (occurrence: GB)
  Receive Date: 20220718
  Receipt Date: 20220811
  Transmission Date: 20221026
  Serious: Yes (Other)
  Sender: FDA-Public Use
  Company Number: GB-SAMSUNG BIOEPIS-SB-2022-17108

PATIENT
  Sex: Female

DRUGS (1)
  1. ETANERCEPT [Suspect]
     Active Substance: ETANERCEPT
     Indication: Rheumatoid arthritis
     Route: 058
     Dates: start: 20220623

REACTIONS (7)
  - Feeling abnormal [Unknown]
  - Headache [Unknown]
  - Peripheral swelling [Unknown]
  - Swelling face [Unknown]
  - Hot flush [Unknown]
  - Feeling cold [Unknown]
  - Blood pressure systolic increased [Not Recovered/Not Resolved]
